FAERS Safety Report 9914859 (Version 1)
Quarter: 2014Q1

REPORT INFORMATION
  Report Type: Spontaneous
  Country: US (occurrence: US)
  Receive Date: 20140220
  Receipt Date: 20140220
  Transmission Date: 20141002
  Serious: Yes (Other)
  Sender: FDA-Public Use
  Company Number: US-LUNDBECK-DKLU1097647

PATIENT
  Age: 1 Year
  Sex: Female

DRUGS (1)
  1. SABRIL (FOR ORAL SOLUTION) [Suspect]
     Indication: PRODUCT USED FOR UNKNOWN INDICATION

REACTIONS (1)
  - Blindness cortical [Unknown]
